FAERS Safety Report 6390856-8 (Version None)
Quarter: 2009Q4

REPORT INFORMATION
  Report Type: 
  Country: None (occurrence: None)
  Receive Date: 20091003
  Receipt Date: 20090924
  Transmission Date: 20100525
  Serious: Yes (Hospitalization)
  Sender: FDA-Public Use
  Company Number: FABR-1001007

PATIENT
  Age: 43 Year
  Sex: Male
  Weight: 45 kg

DRUGS (1)
  1. FABRAZYME [Suspect]
     Indication: FABRY'S DISEASE
     Dosage: 45 MG, INTRAVENOUS
     Route: 042
     Dates: start: 20040428

REACTIONS (1)
  - CEREBRAL HAEMORRHAGE [None]
